FAERS Safety Report 6842963-0 (Version None)
Quarter: 2010Q3

REPORT INFORMATION
  Report Type: 
  Country: None (occurrence: None)
  Receive Date: 20100714
  Receipt Date: 20070807
  Transmission Date: 20110219
  Serious: No
  Sender: FDA-Public Use
  Company Number: US-PFIZER INC-2007066796

PATIENT
  Sex: Male
  Weight: 111.36 kg

DRUGS (4)
  1. CHANTIX [Suspect]
     Indication: SMOKING CESSATION THERAPY
     Route: 048
     Dates: start: 20070801, end: 20070806
  2. LAMISIL [Concomitant]
  3. SUDAFED 12 HOUR [Concomitant]
  4. IBUPROFEN [Concomitant]

REACTIONS (4)
  - BACK PAIN [None]
  - DIZZINESS [None]
  - HEADACHE [None]
  - PALPITATIONS [None]
